FAERS Safety Report 16848787 (Version 3)
Quarter: 2024Q1

REPORT INFORMATION
  Report Type: Spontaneous
  Country: US (occurrence: US)
  Receive Date: 20190925
  Receipt Date: 20240212
  Transmission Date: 20240409
  Serious: Yes (Hospitalization, Other)
  Sender: FDA-Public Use
  Company Number: US-GILEAD-2019-0429707

PATIENT
  Sex: Male
  Weight: 92.971 kg

DRUGS (40)
  1. TRUVADA [Suspect]
     Active Substance: EMTRICITABINE\TENOFOVIR DISOPROXIL FUMARATE
     Indication: HIV infection
     Dosage: UNK
     Route: 048
     Dates: start: 2001
  2. TRUVADA [Suspect]
     Active Substance: EMTRICITABINE\TENOFOVIR DISOPROXIL FUMARATE
     Dosage: UNK
     Route: 048
     Dates: start: 20050117, end: 200602
  3. TRUVADA [Suspect]
     Active Substance: EMTRICITABINE\TENOFOVIR DISOPROXIL FUMARATE
     Dosage: UNK
     Route: 048
     Dates: start: 200501, end: 200511
  4. VIREAD [Suspect]
     Active Substance: TENOFOVIR DISOPROXIL FUMARATE
     Indication: HIV infection
     Dosage: UNK
     Route: 048
     Dates: start: 2001
  5. VIREAD [Suspect]
     Active Substance: TENOFOVIR DISOPROXIL FUMARATE
     Dosage: UNK
     Route: 048
     Dates: start: 20020630, end: 201512
  6. EPIVIR [Concomitant]
     Active Substance: LAMIVUDINE
  7. SELZENTRY [Concomitant]
     Active Substance: MARAVIROC
  8. TIVICAY [Concomitant]
     Active Substance: DOLUTEGRAVIR SODIUM
     Dosage: UNK
  9. SUSTIVA [Concomitant]
     Active Substance: EFAVIRENZ
  10. CLINDAMYCIN [Concomitant]
     Active Substance: CLINDAMYCIN
  11. SULFAMETHOXAZOLE AND TRIMETHOPRIM [Concomitant]
     Active Substance: SULFAMETHOXAZOLE\TRIMETHOPRIM
  12. DIFLUCAN [Concomitant]
     Active Substance: FLUCONAZOLE
  13. ZITHROMAX [Concomitant]
     Active Substance: AZITHROMYCIN DIHYDRATE
  14. LEUCOVORIN [Concomitant]
     Active Substance: LEUCOVORIN\LEUCOVORIN CALCIUM
  15. MONOPRIL [Concomitant]
     Active Substance: FOSINOPRIL SODIUM
  16. CLONIDINE [Concomitant]
     Active Substance: CLONIDINE
  17. DARAPRIM [Concomitant]
     Active Substance: PYRIMETHAMINE
  18. FOSINOPRIL [Concomitant]
     Active Substance: FOSINOPRIL
  19. SULAR [Concomitant]
     Active Substance: NISOLDIPINE
  20. CYANOCOBALAMIN [Concomitant]
     Active Substance: CYANOCOBALAMIN
  21. PHOSLO [Concomitant]
     Active Substance: CALCIUM ACETATE
  22. AMLODIPINE [Concomitant]
     Active Substance: AMLODIPINE BESYLATE
  23. IBUPROFEN [Concomitant]
     Active Substance: IBUPROFEN
  24. VIAGRA [Concomitant]
     Active Substance: SILDENAFIL CITRATE
  25. CIALIS [Concomitant]
     Active Substance: TADALAFIL
  26. LABETALOL [Concomitant]
     Active Substance: LABETALOL\LABETALOL HYDROCHLORIDE
  27. CALCIUM ACETATE [Concomitant]
     Active Substance: CALCIUM ACETATE
  28. RENVELA [Concomitant]
     Active Substance: SEVELAMER CARBONATE
     Dosage: UNK
  29. ASPIRIN [Concomitant]
     Active Substance: ASPIRIN
  30. METOPROLOL TARTRATE [Concomitant]
     Active Substance: METOPROLOL TARTRATE
     Dosage: UNK
  31. ENALAPRIL [Concomitant]
     Active Substance: ENALAPRIL
  32. NIFEDIPINE [Concomitant]
     Active Substance: NIFEDIPINE
  33. VITAMIN D NOS [Concomitant]
     Active Substance: VITAMIN D NOS
  34. CRESTOR [Concomitant]
     Active Substance: ROSUVASTATIN CALCIUM
  35. ATORVASTATIN [Concomitant]
     Active Substance: ATORVASTATIN
  36. BISACODYL [Concomitant]
     Active Substance: BISACODYL
  37. CLOPIDOGREL [Concomitant]
     Active Substance: CLOPIDOGREL BISULFATE
  38. LAMIVUDINE [Concomitant]
     Active Substance: LAMIVUDINE
     Dosage: UNK
  39. SODIUM POLYSTYRENE SULFONATE [Concomitant]
     Active Substance: SODIUM POLYSTYRENE SULFONATE
  40. NORVASC [Concomitant]
     Active Substance: AMLODIPINE BESYLATE

REACTIONS (13)
  - Acute kidney injury [Not Recovered/Not Resolved]
  - Renal failure [Not Recovered/Not Resolved]
  - Congenital cystic kidney disease [Not Recovered/Not Resolved]
  - End stage renal disease [Not Recovered/Not Resolved]
  - Cardiac failure congestive [Not Recovered/Not Resolved]
  - Fatigue [Not Recovered/Not Resolved]
  - Pain [Not Recovered/Not Resolved]
  - Emotional distress [Not Recovered/Not Resolved]
  - Loss of personal independence in daily activities [Not Recovered/Not Resolved]
  - Anxiety [Not Recovered/Not Resolved]
  - Anhedonia [Not Recovered/Not Resolved]
  - Economic problem [Not Recovered/Not Resolved]
  - Anaemia [Not Recovered/Not Resolved]

NARRATIVE: CASE EVENT DATE: 20050101
